FAERS Safety Report 9008706 (Version 2)
Quarter: 2013Q1

REPORT INFORMATION
  Report Type: Spontaneous
  Country: JP (occurrence: JP)
  Receive Date: 20130111
  Receipt Date: 20130125
  Transmission Date: 20140127
  Serious: Yes (Other)
  Sender: FDA-Public Use
  Company Number: JP-ROCHE-1178779

PATIENT
  Age: 61 Year
  Sex: Male
  Weight: 72 kg

DRUGS (8)
  1. AVASTIN [Suspect]
     Indication: RECTAL CANCER METASTATIC
     Route: 041
     Dates: start: 20120416, end: 20121126
  2. ELPLAT [Suspect]
     Indication: RECTAL CANCER METASTATIC
     Route: 041
     Dates: start: 20120416, end: 20121126
  3. 5-FU [Concomitant]
     Indication: RECTAL CANCER METASTATIC
     Dosage: DOSAGE IS UNCERTAIN.
     Route: 041
     Dates: start: 20120416, end: 20121126
  4. 5-FU [Concomitant]
     Indication: COLON CANCER
  5. LEVOFOLINATE [Concomitant]
     Indication: RECTAL CANCER METASTATIC
     Route: 041
     Dates: start: 20120416, end: 20121126
  6. EMEND [Concomitant]
     Route: 065
     Dates: start: 20120416
  7. EMEND [Concomitant]
     Route: 065
     Dates: end: 20121126
  8. ALOXI [Concomitant]
     Route: 065
     Dates: start: 20120416, end: 20121126

REACTIONS (1)
  - Interstitial lung disease [Recovered/Resolved]
